FAERS Safety Report 19361348 (Version 1)
Quarter: 2021Q2

REPORT INFORMATION
  Report Type: Spontaneous
  Country: ES (occurrence: ES)
  Receive Date: 20210603
  Receipt Date: 20210603
  Transmission Date: 20210717
  Serious: Yes (Other)
  Sender: FDA-Public Use
  Company Number: ES-SA-2021SA180351

PATIENT
  Age: 41 Year
  Sex: Male

DRUGS (3)
  1. DUPILUMAB [Suspect]
     Active Substance: DUPILUMAB
     Dosage: UNK UNK, Q15D
     Route: 058
     Dates: start: 20201120
  2. TRIAMCINOLONA [TRIAMCINOLONE] [Concomitant]
     Dosage: UNK
     Dates: start: 20200109
  3. ATARAX [Concomitant]
     Active Substance: HYDROXYZINE HYDROCHLORIDE
     Dosage: UNK

REACTIONS (1)
  - Corneal graft rejection [Recovered/Resolved]

NARRATIVE: CASE EVENT DATE: 20201211
